FAERS Safety Report 25198689 (Version 2)
Quarter: 2025Q2

REPORT INFORMATION
  Report Type: Spontaneous
  Country: IT (occurrence: IT)
  Receive Date: 20250415
  Receipt Date: 20250422
  Transmission Date: 20250716
  Serious: Yes (Other)
  Sender: MYLAN
  Company Number: IT-MYLANLABS-2025M1031570

PATIENT
  Sex: Male

DRUGS (1)
  1. LYRICA [Suspect]
     Active Substance: PREGABALIN
     Indication: Pain
     Dosage: 1 DOSAGE FORM, BID (ONE CAPSULE IN THE MORNING AND ONE IN THE EVENING)

REACTIONS (2)
  - Diverticulitis [Recovered/Resolved]
  - Pain [Recovered/Resolved]
